FAERS Safety Report 6911966-X (Version None)
Quarter: 2010Q3

REPORT INFORMATION
  Report Type: 
  Country: None (occurrence: None)
  Receive Date: 20100806
  Receipt Date: 20071105
  Transmission Date: 20110219
  Serious: No
  Sender: FDA-Public Use
  Company Number: US-PFIZER INC-2007046745

PATIENT
  Sex: Male
  Weight: 79.4 kg

DRUGS (16)
  1. VFEND [Suspect]
     Indication: ASPERGILLOSIS
     Route: 048
     Dates: start: 20070521
  2. CARDIZEM [Concomitant]
     Route: 048
  3. ALBUTEROL [Concomitant]
  4. ADVAIR DISKUS 100/50 [Concomitant]
     Route: 055
  5. COMBIVENT [Concomitant]
     Route: 055
  6. PRILOSEC [Concomitant]
     Route: 048
  7. NASACORT [Concomitant]
     Route: 055
  8. LASIX [Concomitant]
     Route: 048
  9. WELLBUTRIN [Concomitant]
     Route: 048
  10. PROVIGIL [Concomitant]
     Route: 048
  11. SPIRIVA [Concomitant]
     Route: 055
  12. ALLEGRA [Concomitant]
     Route: 048
  13. VITAMIN TAB [Concomitant]
     Route: 048
  14. TOBRAMYCIN [Concomitant]
     Route: 042
     Dates: end: 20070524
  15. METRONIDAZOLE [Concomitant]
     Route: 042
     Dates: end: 20070524
  16. MEDROL [Concomitant]
     Route: 042
     Dates: end: 20070524

REACTIONS (8)
  - CHEST DISCOMFORT [None]
  - CONFUSIONAL STATE [None]
  - DYSPNOEA [None]
  - FATIGUE [None]
  - HEART RATE IRREGULAR [None]
  - JOINT SWELLING [None]
  - RESTLESSNESS [None]
  - VISION BLURRED [None]
